FAERS Safety Report 7753600-5 (Version None)
Quarter: 2011Q3

REPORT INFORMATION
  Report Type: 
  Country: None (occurrence: None)
  Receive Date: 20110915
  Receipt Date: 20110909
  Transmission Date: 20111222
  Serious: Yes (Life-Threatening, Hospitalization, Other)
  Sender: FDA-Public Use
  Company Number: US-GLAXOSMITHKLINE-A0939121A

PATIENT
  Age: 41 Year
  Sex: Female
  Weight: 57.3 kg

DRUGS (2)
  1. LAMICTAL XR [Suspect]
     Indication: CONVULSION
     Dosage: 50MG PER DAY
     Route: 048
     Dates: start: 20110628, end: 20110715
  2. NO CONCURRENT MEDICATION [Concomitant]

REACTIONS (6)
  - STEVENS-JOHNSON SYNDROME [None]
  - NAUSEA [None]
  - BRONCHITIS [None]
  - SWOLLEN TONGUE [None]
  - URTICARIA [None]
  - THERMAL BURN [None]
